FAERS Safety Report 6445273-9 (Version None)
Quarter: 2009Q4

REPORT INFORMATION
  Report Type: 
  Country: None (occurrence: None)
  Receive Date: 20091118
  Receipt Date: 20091106
  Transmission Date: 20100525
  Serious: Yes (Other)
  Sender: FDA-Public Use
  Company Number: GB-PFIZER INC-2009294833

PATIENT
  Age: 44 Year
  Sex: Male

DRUGS (1)
  1. GABAPENTIN [Suspect]
     Dosage: 900 MG, 3X/DAY
     Dates: start: 20090301

REACTIONS (2)
  - DISEASE PROGRESSION [None]
  - OESOPHAGEAL STENOSIS [None]
